FAERS Safety Report 24155150 (Version 1)
Quarter: 2024Q3

REPORT INFORMATION
  Report Type: Other
  Country: CA (occurrence: CA)
  Receive Date: 20240731
  Receipt Date: 20240731
  Transmission Date: 20241017
  Serious: Yes (Other)
  Sender: APOTEX
  Company Number: CA-APOTEX-2023AP010833

PATIENT
  Age: 6 Decade
  Sex: Female

DRUGS (11)
  1. CELECOXIB [Suspect]
     Active Substance: CELECOXIB
     Indication: Greater trochanteric pain syndrome
     Dosage: 200 MILLIGRAM, BID
     Route: 048
  2. CELECOXIB [Suspect]
     Active Substance: CELECOXIB
     Indication: Pain in extremity
  3. GABAPENTIN [Suspect]
     Active Substance: GABAPENTIN
     Indication: Greater trochanteric pain syndrome
     Dosage: 300 MILLIGRAM, TID
     Route: 048
  4. GABAPENTIN [Suspect]
     Active Substance: GABAPENTIN
     Indication: Pain in extremity
  5. NAPROXEN [Suspect]
     Active Substance: NAPROXEN
     Indication: Greater trochanteric pain syndrome
     Dosage: UNK
     Route: 065
  6. NAPROXEN [Suspect]
     Active Substance: NAPROXEN
     Indication: Pain in extremity
  7. TRAMADOL [Suspect]
     Active Substance: TRAMADOL\TRAMADOL HYDROCHLORIDE
     Indication: Greater trochanteric pain syndrome
     Dosage: UNK
     Route: 065
  8. TRAMADOL [Suspect]
     Active Substance: TRAMADOL\TRAMADOL HYDROCHLORIDE
     Indication: Pain in extremity
  9. DICLOFENAC [Suspect]
     Active Substance: DICLOFENAC
     Indication: Greater trochanteric pain syndrome
     Dosage: UNK, TID
     Route: 061
  10. DICLOFENAC [Suspect]
     Active Substance: DICLOFENAC
     Indication: Pain in extremity
  11. BUPIVACAINE [Concomitant]
     Active Substance: BUPIVACAINE
     Indication: Product used for unknown indication
     Dosage: UNK
     Route: 065

REACTIONS (2)
  - Off label use [Unknown]
  - Drug ineffective [Unknown]
